FAERS Safety Report 17549073 (Version 1)
Quarter: 2020Q1

REPORT INFORMATION
  Report Type: Spontaneous
  Country: US (occurrence: US)
  Receive Date: 20200306
  Receipt Date: 20200306
  Transmission Date: 20200409
  Serious: Yes (Hospitalization)
  Sender: FDA-Public Use
  Company Number: None

PATIENT
  Age: 64 Year
  Sex: Male
  Weight: 96.84 kg

DRUGS (1)
  1. ELUXADOLINE (ELUXADOLINE 100MG TAB) [Suspect]
     Active Substance: ELUXADOLINE
     Indication: IRRITABLE BOWEL SYNDROME
     Route: 048
     Dates: start: 20180405, end: 20180405

REACTIONS (6)
  - Vomiting [None]
  - Alanine aminotransferase increased [None]
  - Aspartate aminotransferase increased [None]
  - Nausea [None]
  - Abdominal pain [None]
  - Pancreatitis [None]

NARRATIVE: CASE EVENT DATE: 20180405
